FAERS Safety Report 12565449 (Version 2)
Quarter: 2016Q3

REPORT INFORMATION
  Report Type: Spontaneous
  Country: US (occurrence: US)
  Receive Date: 20160718
  Receipt Date: 20160722
  Transmission Date: 20161109
  Serious: Yes (Other)
  Sender: FDA-Public Use
  Company Number: US-ROCHE-1795522

PATIENT
  Age: 30 Year
  Sex: Female

DRUGS (2)
  1. CLOPIDOGREL [Concomitant]
     Active Substance: CLOPIDOGREL BISULFATE
     Indication: PRODUCT USED FOR UNKNOWN INDICATION
     Route: 065
  2. ACTILYSE [Suspect]
     Active Substance: ALTEPLASE
     Indication: LATERAL MEDULLARY SYNDROME
     Route: 065

REACTIONS (3)
  - Pleural effusion [Unknown]
  - Subarachnoid haemorrhage [Unknown]
  - Atelectasis [Unknown]
